FAERS Safety Report 13961886 (Version 1)
Quarter: 2017Q3

REPORT INFORMATION
  Report Type: Spontaneous
  Country: JP (occurrence: JP)
  Receive Date: 20170912
  Receipt Date: 20170912
  Transmission Date: 20171128
  Serious: Yes (Other)
  Sender: FDA-Public Use
  Company Number: PHJP2017JP027917

PATIENT
  Age: 77 Year
  Sex: Female

DRUGS (1)
  1. IMATINIB [Suspect]
     Active Substance: IMATINIB
     Indication: GASTROINTESTINAL STROMAL TUMOUR
     Dosage: UNK
     Route: 065

REACTIONS (6)
  - Infectious pleural effusion [Unknown]
  - Cytopenia [Unknown]
  - Anastomotic leak [Recovered/Resolved]
  - Suture related complication [Recovered/Resolved]
  - Pleural effusion [Unknown]
  - Renal impairment [Unknown]
